FAERS Safety Report 26074200 (Version 1)
Quarter: 2025Q4

REPORT INFORMATION
  Report Type: Spontaneous
  Country: CN (occurrence: CN)
  Receive Date: 20251121
  Receipt Date: 20251121
  Transmission Date: 20260117
  Serious: Yes (Hospitalization)
  Sender: NOVARTIS
  Company Number: CN-002147023-NVSC2025CN176060

PATIENT
  Age: 76 Year
  Sex: Female
  Weight: 65 kg

DRUGS (1)
  1. OXCARBAZEPINE [Suspect]
     Active Substance: OXCARBAZEPINE
     Indication: Anxiety
     Dosage: 0.15 G, BID
     Route: 048
     Dates: start: 20251029, end: 20251031

REACTIONS (5)
  - Dizziness [Recovering/Resolving]
  - Gait disturbance [Unknown]
  - Somnolence [Unknown]
  - Ocular discomfort [Unknown]
  - Off label use [Unknown]

NARRATIVE: CASE EVENT DATE: 20251102
